FAERS Safety Report 6321984-0 (Version None)
Quarter: 2009Q3

REPORT INFORMATION
  Report Type: 
  Country: None (occurrence: None)
  Receive Date: 20090824
  Receipt Date: 20090820
  Transmission Date: 20100115
  Serious: No
  Sender: FDA-Public Use
  Company Number: US-B.I. PHARMACEUTICALS,INC./RIDGEFIELD-2009-BP-09843BP

PATIENT
  Age: 62 Year
  Sex: Male

DRUGS (6)
  1. SPIRIVA [Suspect]
     Indication: CHRONIC OBSTRUCTIVE PULMONARY DISEASE
     Dosage: 18 MCG
     Route: 055
     Dates: start: 20090801, end: 20090801
  2. VERAPAMIL [Concomitant]
     Indication: HYPERTENSION
  3. LISINOPRIL [Concomitant]
     Indication: HYPERTENSION
  4. KLONOPIN [Concomitant]
     Indication: ANXIETY
  5. MOTRIN [Concomitant]
     Indication: OSTEOARTHRITIS
  6. DARVOCET-N 100 [Concomitant]
     Indication: OSTEOARTHRITIS

REACTIONS (2)
  - FEELING JITTERY [None]
  - INSOMNIA [None]
